FAERS Safety Report 6616822-2 (Version None)
Quarter: 2010Q1

REPORT INFORMATION
  Report Type: 
  Country: None (occurrence: None)
  Receive Date: 20100301
  Receipt Date: 20100222
  Transmission Date: 20100710
  Serious: Yes (Death)
  Sender: FDA-Public Use
  Company Number: ALL1-2010-00896

PATIENT
  Age: 86 Year
  Sex: Male

DRUGS (1)
  1. FOSRENOL [Suspect]
     Indication: HYPERPHOSPHATAEMIA
     Dosage: 1000 MG, OTHER, (1) TABLET EACH MEAL, SOMETIMES SNACKS, ORAL
     Route: 048

REACTIONS (1)
  - DEATH [None]
